FAERS Safety Report 6687447-8 (Version None)
Quarter: 2010Q2

REPORT INFORMATION
  Report Type: 
  Country: None (occurrence: None)
  Receive Date: 20100419
  Receipt Date: 20100407
  Transmission Date: 20101027
  Serious: Yes (Other)
  Sender: FDA-Public Use
  Company Number: PHHY2010US21892

PATIENT
  Sex: Female

DRUGS (5)
  1. FEMARA [Suspect]
  2. LISINOPRIL [Concomitant]
  3. PLETAL [Concomitant]
  4. HYDROCHLOROTHIAZIDE [Concomitant]
  5. ALEVE (CAPLET) [Concomitant]

REACTIONS (1)
  - HEARING IMPAIRED [None]
